FAERS Safety Report 7884105-9 (Version None)
Quarter: 2011Q4

REPORT INFORMATION
  Report Type: 
  Country: None (occurrence: None)
  Receive Date: 20111102
  Receipt Date: 20111027
  Transmission Date: 20120403
  Serious: Yes (Death)
  Sender: FDA-Public Use
  Company Number: US-CELGENEUS-163-21880-11103466

PATIENT
  Sex: Male

DRUGS (11)
  1. VICODIN [Concomitant]
     Dosage: 40 MILLIGRAM
     Route: 065
  2. PANTOPRAZOLE [Concomitant]
     Dosage: 40 MILLIGRAM
     Route: 065
  3. AMIODARONE HCL [Concomitant]
     Dosage: 200 MILLIGRAM
     Route: 065
  4. GLIPIZIDE [Concomitant]
     Dosage: 5 MILLIGRAM
     Route: 065
  5. METOPROLOL TARTRATE [Concomitant]
     Dosage: 100 MILLIGRAM
     Route: 065
  6. MEGESTROL AC [Concomitant]
     Dosage: 20 MILLIGRAM
     Route: 065
  7. REVLIMID [Suspect]
     Indication: MULTIPLE MYELOMA
     Dosage: 10 MILLIGRAM
     Route: 048
     Dates: start: 20090929, end: 20110428
  8. ASPIRIN [Concomitant]
     Dosage: 5 GRAM
     Route: 065
  9. COUMADIN [Concomitant]
     Dosage: 6 MILLIGRAM
     Route: 065
  10. DEXAMETHASONE [Concomitant]
     Dosage: 6 MILLIGRAM
     Route: 065
  11. FUROSEMIDE [Concomitant]
     Dosage: 40 MILLIGRAM
     Route: 065

REACTIONS (1)
  - DEATH [None]
